FAERS Safety Report 24030795 (Version 1)
Quarter: 2024Q2

REPORT INFORMATION
  Report Type: Spontaneous
  Country: SK (occurrence: SK)
  Receive Date: 20240628
  Receipt Date: 20240628
  Transmission Date: 20240716
  Serious: Yes (Other)
  Sender: FDA-Public Use
  Company Number: None

PATIENT
  Sex: Female

DRUGS (4)
  1. XELJANZ [Suspect]
     Active Substance: TOFACITINIB CITRATE
     Indication: Colitis ulcerative
     Dosage: 2-0-2 EVERY 12 HOURS
     Dates: start: 20220225, end: 20220325
  2. XELJANZ [Suspect]
     Active Substance: TOFACITINIB CITRATE
     Dosage: 1-0-1 EVERY 12 HOURS
     Dates: start: 20220425
  3. PENTASA [Concomitant]
     Active Substance: MESALAMINE
     Indication: Colitis ulcerative
     Dosage: EVERY 12 HOURS
     Dates: start: 202111
  4. PREDNISONE [Concomitant]
     Active Substance: PREDNISONE
     Dosage: FREQ:12 H;
     Dates: end: 202205

REACTIONS (3)
  - Colitis ulcerative [Unknown]
  - Rash [Recovered/Resolved]
  - Pruritus [Not Recovered/Not Resolved]

NARRATIVE: CASE EVENT DATE: 20220501
